FAERS Safety Report 26137407 (Version 1)
Quarter: 2025Q4

REPORT INFORMATION
  Report Type: Spontaneous
  Country: US (occurrence: US)
  Receive Date: 20251209
  Receipt Date: 20251209
  Transmission Date: 20260117
  Serious: Yes (Hospitalization)
  Sender: PURDUE
  Company Number: US-NAPPMUNDI-GBR-2025-0131130

PATIENT
  Age: 47 Year
  Sex: Female

DRUGS (2)
  1. MORPHINE SULFATE [Suspect]
     Active Substance: MORPHINE SULFATE
     Indication: Pain
     Dosage: 60 MILLIGRAM, TID (THREE TIMES A DAILY)
     Route: 065
  2. MORPHINE [Suspect]
     Active Substance: MORPHINE
     Indication: Breakthrough pain
     Dosage: 30 MILLIGRAM, PRN
     Route: 065

REACTIONS (3)
  - Stress cardiomyopathy [Unknown]
  - Inappropriate schedule of product administration [Unknown]
  - Inappropriate schedule of product discontinuation [Unknown]
